FAERS Safety Report 14264011 (Version 1)
Quarter: 2017Q4

REPORT INFORMATION
  Report Type: Report from Study
  Country: DE (occurrence: DE)
  Receive Date: 20171208
  Receipt Date: 20171208
  Transmission Date: 20180321
  Serious: Yes (Hospitalization)
  Sender: FDA-Public Use
  Company Number: PHHO2014DE010297

PATIENT

DRUGS (2)
  1. AIN457 [Suspect]
     Active Substance: SECUKINUMAB
     Indication: PUSTULAR PSORIASIS
     Dosage: 300 MG, UNK
     Route: 058
     Dates: start: 20140617, end: 20140812
  2. CEFUROXIME. [Concomitant]
     Active Substance: CEFUROXIME
     Indication: ERYSIPELAS
     Dosage: 500 MG, BID
     Route: 048
     Dates: start: 20140707, end: 20140713

REACTIONS (2)
  - Superinfection bacterial [Recovered/Resolved]
  - Psoriasis [Recovered/Resolved]

NARRATIVE: CASE EVENT DATE: 20140722
